FAERS Safety Report 8910049 (Version 1)
Quarter: 2012Q4

REPORT INFORMATION
  Report Type: 
  Country: US (occurrence: US)
  Receive Date: 20121115
  Receipt Date: 20121115
  Transmission Date: 20130627
  Serious: No
  Sender: FDA-Public Use
  Company Number: US-009507513-1211USA003268

PATIENT
  Age: 53 Year
  Sex: Male

DRUGS (2)
  1. PEGINTRON [Suspect]
     Indication: HEPATITIS
     Dosage: 0.5 ml, qw
     Route: 058
     Dates: start: 20121029
  2. RIBAVIRIN [Suspect]

REACTIONS (3)
  - Influenza like illness [Not Recovered/Not Resolved]
  - Underdose [Unknown]
  - Product quality issue [Unknown]
